FAERS Safety Report 23915308 (Version 2)
Quarter: 2024Q3

REPORT INFORMATION
  Report Type: Spontaneous
  Country: SI (occurrence: SI)
  Receive Date: 20240529
  Receipt Date: 20240710
  Transmission Date: 20241017
  Serious: Yes (Other)
  Sender: OTSUKA
  Company Number: SI-OTSUKA-2024_014906

PATIENT
  Age: 30 Year
  Sex: Male

DRUGS (1)
  1. ABILIFY MAINTENA [Suspect]
     Active Substance: ARIPIPRAZOLE
     Indication: Schizophrenia
     Dosage: UNK (TAKEN FOR 5 YEARS)
     Route: 065
     Dates: start: 2019

REACTIONS (1)
  - Pulmonary embolism [Unknown]
